FAERS Safety Report 7372356-1 (Version None)
Quarter: 2011Q1

REPORT INFORMATION
  Report Type: 
  Country: None (occurrence: None)
  Receive Date: 20110324
  Receipt Date: 20110222
  Transmission Date: 20110831
  Serious: Yes (Other)
  Sender: FDA-Public Use
  Company Number: D0070542A

PATIENT
  Sex: Female

DRUGS (4)
  1. ELONTRIL [Suspect]
     Indication: MENTAL DISORDER
     Dosage: 300MG PER DAY
     Route: 048
  2. ESCITALOPRAM [Suspect]
     Dosage: 20MG PER DAY
     Route: 065
  3. LAMOTRIGINE [Suspect]
     Dosage: 200MG PER DAY
     Route: 065
  4. QUETIAPINE [Suspect]
     Dosage: 400MG PER DAY
     Route: 065

REACTIONS (2)
  - DIABETES INSIPIDUS [None]
  - POLYDIPSIA [None]
